FAERS Safety Report 6982349-1 (Version None)
Quarter: 2010Q3

REPORT INFORMATION
  Report Type: 
  Country: None (occurrence: None)
  Receive Date: 20100909
  Receipt Date: 20100826
  Transmission Date: 20110219
  Serious: Yes (Life-Threatening, Hospitalization, Disabling)
  Sender: FDA-Public Use
  Company Number: 2010P1001102

PATIENT
  Age: 78 Year
  Sex: Male
  Weight: 94.3482 kg

DRUGS (5)
  1. COLCRYS [Suspect]
     Indication: GOUT
     Dosage: 1.6 MG; BID; PO, 10 TABLETS; PER DAY; PO
     Route: 048
     Dates: start: 20100802, end: 20100802
  2. COLCRYS [Suspect]
     Indication: GOUT
     Dosage: 1.6 MG; BID; PO, 10 TABLETS; PER DAY; PO
     Route: 048
     Dates: start: 20100803
  3. LASIX [Concomitant]
  4. COREG [Concomitant]
  5. INSULIN [Concomitant]

REACTIONS (8)
  - DIARRHOEA [None]
  - DIARRHOEA HAEMORRHAGIC [None]
  - LEG AMPUTATION [None]
  - PURULENCE [None]
  - RHABDOMYOLYSIS [None]
  - SEPSIS [None]
  - STRESS ULCER [None]
  - THERAPEUTIC AGENT TOXICITY [None]
